FAERS Safety Report 4390395-X (Version None)
Quarter: 2004Q2

REPORT INFORMATION
  Report Type: 
  Country: None (occurrence: None)
  Receive Date: 20040628
  Receipt Date: 20040611
  Transmission Date: 20050107
  Serious: Yes (Other)
  Sender: FDA-Public Use
  Company Number: M2004.0704

PATIENT
  Age: 46 Year
  Sex: Male
  Weight: 91 kg

DRUGS (3)
  1. RIMACTANE [Suspect]
     Indication: LEPROSY
     Dates: start: 20020115, end: 20040115
  2. LAMPRENE [Suspect]
     Indication: LEPROSY
     Dates: start: 20020115, end: 20040115
  3. PREDNISONE [Concomitant]

REACTIONS (5)
  - BLINDNESS UNILATERAL [None]
  - GAIT DISTURBANCE [None]
  - HEARING IMPAIRED [None]
  - HYPOAESTHESIA [None]
  - SECRETION DISCHARGE [None]
